FAERS Safety Report 7285514-1 (Version None)
Quarter: 2011Q1

REPORT INFORMATION
  Report Type: 
  Country: None (occurrence: None)
  Receive Date: 20110131
  Receipt Date: 20110115
  Transmission Date: 20110831
  Serious: Yes (Other)
  Sender: FDA-Public Use
  Company Number: 2011SP002588

PATIENT
  Sex: Female

DRUGS (2)
  1. RIBAVIRIN [Suspect]
     Indication: HEPATITIS C
     Dates: start: 20101226
  2. PEG-INTRON [Suspect]
     Indication: HEPATITIS C
     Dates: start: 20101226

REACTIONS (12)
  - TOOTH LOSS [None]
  - LIVER TRANSPLANT [None]
  - CHOLECYSTECTOMY [None]
  - POST PROCEDURAL COMPLICATION [None]
  - OXYGEN SATURATION DECREASED [None]
  - BILE DUCT STONE [None]
  - PURULENCE [None]
  - LOSS OF CONSCIOUSNESS [None]
  - RENAL FAILURE [None]
  - PULMONARY OEDEMA [None]
  - BLOOD PRESSURE DECREASED [None]
  - SEPSIS [None]
